FAERS Safety Report 24215190 (Version 1)
Quarter: 2024Q3

REPORT INFORMATION
  Report Type: Spontaneous
  Country: FR (occurrence: FR)
  Receive Date: 20240816
  Receipt Date: 20240816
  Transmission Date: 20241017
  Serious: Yes (Hospitalization, Other)
  Sender: AUROBINDO
  Company Number: FR-AFSSAPS-CF2024000405

PATIENT
  Age: 87 Year
  Sex: Female
  Weight: 80 kg

DRUGS (2)
  1. AMOXICILLIN [Suspect]
     Active Substance: AMOXICILLIN
     Indication: Skin infection
     Dosage: 1 GRAM, 3 TIMES A DAY
     Route: 048
     Dates: start: 20240717, end: 20240724
  2. FUROSEMIDE [Suspect]
     Active Substance: FUROSEMIDE
     Indication: Oedema peripheral
     Dosage: 80 MILLIGRAM, ONCE A DAY
     Route: 048
     Dates: start: 20240717, end: 20240724

REACTIONS (3)
  - Acute kidney injury [Recovering/Resolving]
  - Toxic skin eruption [Recovering/Resolving]
  - Erythema [Recovering/Resolving]

NARRATIVE: CASE EVENT DATE: 20240723
